FAERS Safety Report 14747476 (Version 2)
Quarter: 2018Q3

REPORT INFORMATION
  Report Type: Spontaneous
  Country: US (occurrence: US)
  Receive Date: 20180411
  Receipt Date: 20180716
  Transmission Date: 20181010
  Serious: Yes (Death, Hospitalization, Other)
  Sender: FDA-Public Use
  Company Number: US-PFIZER INC-2018143427

PATIENT
  Age: 81 Year
  Sex: Male
  Weight: 111.11 kg

DRUGS (2)
  1. LYRICA [Suspect]
     Active Substance: PREGABALIN
     Indication: RESTLESS LEGS SYNDROME
     Dosage: 50 MG, 2X/DAY
     Route: 048
  2. LYRICA [Suspect]
     Active Substance: PREGABALIN
     Dosage: 250 MG, 2X/DAY (FOR SIX WEEKS)

REACTIONS (15)
  - Product use in unapproved indication [Unknown]
  - Medication error [Recovered/Resolved with Sequelae]
  - Delirium [Recovered/Resolved with Sequelae]
  - Accidental overdose [Unknown]
  - Death [Fatal]
  - Muscular weakness [Not Recovered/Not Resolved]
  - Depressed level of consciousness [Unknown]
  - Pyrexia [Recovered/Resolved]
  - Infection [Unknown]
  - Lung infection [Unknown]
  - Urinary tract infection [Unknown]
  - Gait inability [Unknown]
  - Cystitis [Unknown]
  - Pain [Unknown]
  - Confusional state [Unknown]

NARRATIVE: CASE EVENT DATE: 20180121
